FAERS Safety Report 8515640-8 (Version None)
Quarter: 2012Q3

REPORT INFORMATION
  Report Type: 
  Country: None (occurrence: None)
  Receive Date: 20120717
  Receipt Date: 20120712
  Transmission Date: 20120928
  Serious: Yes (Hospitalization)
  Sender: FDA-Public Use
  Company Number: PHHY2012JP060119

PATIENT
  Age: 79 Year
  Sex: Female

DRUGS (2)
  1. DIOVAN [Suspect]
     Dosage: 80 MG, DAILY
     Route: 048
  2. DIOVAN [Suspect]
     Dosage: 320 MG, (3 TABLETS AT LUNCH HOUR IN ADDITION TO 80 MG OF DIOVAN TAKEN IN THE MORNING)
     Route: 048

REACTIONS (4)
  - OVERDOSE [None]
  - HYPERTENSION [None]
  - HEPATIC NEOPLASM MALIGNANT [None]
  - ACCIDENTAL OVERDOSE [None]
